FAERS Safety Report 9439250 (Version 1)
Quarter: 2013Q3

REPORT INFORMATION
  Report Type: Report from Study
  Country: BE (occurrence: BE)
  Receive Date: 20130804
  Receipt Date: 20130804
  Transmission Date: 20140515
  Serious: Yes (Death, Other)
  Sender: FDA-Public Use
  Company Number: BE-ROCHE-737820

PATIENT
  Sex: 0

DRUGS (3)
  1. RITUXIMAB [Suspect]
     Indication: RHEUMATOID ARTHRITIS
     Dosage: 2 X 1000 MG; WEEK 0 AND 2; INFUSIONS
     Route: 065
  2. METHYLPREDNISOLONE [Concomitant]
     Route: 065
  3. MTX [Concomitant]

REACTIONS (11)
  - Death [Fatal]
  - Infusion related reaction [Unknown]
  - Infection [Unknown]
  - Lymphoma [Unknown]
  - Plasma cell myeloma [Unknown]
  - Pain [Unknown]
  - Drug ineffective [Unknown]
  - Leukopenia [Unknown]
  - Lymphadenopathy mediastinal [Unknown]
  - Alopecia [Unknown]
  - Hallucination [Unknown]
